FAERS Safety Report 7732537-1 (Version None)
Quarter: 2011Q3

REPORT INFORMATION
  Report Type: 
  Country: None (occurrence: None)
  Receive Date: 20110906
  Receipt Date: 20110824
  Transmission Date: 20111222
  Serious: Yes (Hospitalization, Other)
  Sender: FDA-Public Use
  Company Number: US-RB-025592-11

PATIENT
  Age: 24 Year
  Sex: Female

DRUGS (1)
  1. SUBOXONE [Suspect]
     Indication: DRUG DEPENDENCE
     Dosage: PRESCRIBED 16MG DAILY BUT TAKES LESS THAN PRESCRIBED - 8MG DAILY
     Route: 060
     Dates: start: 20110201

REACTIONS (8)
  - BACK PAIN [None]
  - ADRENAL MASS [None]
  - UNDERDOSE [None]
  - PULMONARY MASS [None]
  - SUBSTANCE ABUSE [None]
  - WEIGHT DECREASED [None]
  - CONSTIPATION [None]
  - NECK PAIN [None]
